FAERS Safety Report 11228460 (Version 3)
Quarter: 2015Q3

REPORT INFORMATION
  Report Type: Spontaneous
  Country: NL (occurrence: NL)
  Receive Date: 20150630
  Receipt Date: 20150922
  Transmission Date: 20151125
  Serious: Yes (Death, Hospitalization)
  Sender: FDA-Public Use
  Company Number: NL-GE HEALTHCARE MEDICAL DIAGNOSTICS-VISP-PR-1506S-0235

PATIENT
  Age: 43 Year
  Sex: Male
  Weight: 80 kg

DRUGS (6)
  1. ASCAL [Concomitant]
     Active Substance: CARBASALATE
  2. VISIPAQUE [Suspect]
     Active Substance: IODIXANOL
     Indication: THERAPEUTIC PROCEDURE
     Dosage: DOSE NOT REPORTED
     Route: 065
     Dates: start: 201505, end: 201505
  3. HEPARIN [Concomitant]
     Active Substance: HEPARIN SODIUM
  4. VISIPAQUE [Suspect]
     Active Substance: IODIXANOL
     Indication: VENOUS THROMBOSIS LIMB
  5. VISIPAQUE [Suspect]
     Active Substance: IODIXANOL
     Indication: STENT PLACEMENT
     Route: 013
     Dates: start: 20150605, end: 20150605
  6. TRAMADOL. [Concomitant]
     Active Substance: TRAMADOL

REACTIONS (8)
  - Erythema [Fatal]
  - Renal impairment [Fatal]
  - Nausea [Fatal]
  - Abdominal pain [Fatal]
  - Immune thrombocytopenic purpura [Fatal]
  - Food aversion [Fatal]
  - Chromaturia [Fatal]
  - Urticaria [Fatal]

NARRATIVE: CASE EVENT DATE: 201506
